FAERS Safety Report 6912727-8 (Version None)
Quarter: 2010Q3

REPORT INFORMATION
  Report Type: 
  Country: None (occurrence: None)
  Receive Date: 20100806
  Receipt Date: 20081016
  Transmission Date: 20110219
  Serious: No
  Sender: FDA-Public Use
  Company Number: US-PFIZER INC-2008088129

PATIENT
  Sex: Female
  Weight: 68.181 kg

DRUGS (3)
  1. DETROL LA [Suspect]
     Dates: start: 20081013
  2. AMBIEN [Concomitant]
  3. ALL OTHER THERAPEUTIC PRODUCTS [Concomitant]

REACTIONS (1)
  - INSOMNIA [None]
